FAERS Safety Report 18248577 (Version 2)
Quarter: 2020Q4

REPORT INFORMATION
  Report Type: Spontaneous
  Country: FR (occurrence: FR)
  Receive Date: 20200909
  Receipt Date: 20201117
  Transmission Date: 20210113
  Serious: Yes (Hospitalization)
  Sender: FDA-Public Use
  Company Number: FR-MYLANLABS-2020M1076449

PATIENT
  Age: 65 Year
  Sex: Female
  Weight: 89 kg

DRUGS (20)
  1. LEVOFLOXACINE ARROW [Suspect]
     Active Substance: LEVOFLOXACIN
     Indication: MEDIASTINITIS
     Dosage: 500 MILLIGRAM, QD
     Route: 048
     Dates: start: 20200630, end: 20200802
  2. NOVORAPID [Concomitant]
     Active Substance: INSULIN ASPART
     Dosage: UNK
  3. DULOXETINE HYDROCHLORIDE. [Concomitant]
     Active Substance: DULOXETINE HYDROCHLORIDE
     Dosage: UNK
  4. DAPTOMYCINE [Concomitant]
     Active Substance: DAPTOMYCIN
     Dosage: UNK
  5. KARDEGIC [Concomitant]
     Active Substance: ASPIRIN DL-LYSINE
     Dosage: UNK
  6. CALCIPARINE [Suspect]
     Active Substance: HEPARIN CALCIUM
     Indication: ANTICOAGULANT THERAPY
     Dosage: 0.9 MILLILITER, QD
     Route: 058
     Dates: start: 20200621
  7. ZYMAD [Concomitant]
     Active Substance: CHOLECALCIFEROL
     Dosage: UNK
  8. SERETIDE [Concomitant]
     Active Substance: FLUTICASONE PROPIONATE\SALMETEROL XINAFOATE
     Dosage: UNK
  9. EZETIMIBE. [Concomitant]
     Active Substance: EZETIMIBE
     Dosage: UNK
  10. BISOCE 1,25 MG, COMPRIM? PELLICUL? [Suspect]
     Active Substance: BISOPROLOL FUMARATE
     Indication: CARDIAC DISORDER
     Dosage: 2.5 MILLIGRAM, QD
     Route: 048
     Dates: start: 20200617
  11. PIPERACILLIN AND TAZOBACTAM [Suspect]
     Active Substance: PIPERACILLIN SODIUM\TAZOBACTAM SODIUM
     Indication: MEDIASTINITIS
     Dosage: 12 GRAM, QD, PANPHARMA
     Route: 042
     Dates: start: 20200630, end: 20200802
  12. SALBUTAMOL [Concomitant]
     Active Substance: ALBUTEROL
     Dosage: UNK
  13. FUROSEMIDE. [Concomitant]
     Active Substance: FUROSEMIDE
     Dosage: UNK
  14. XULTOPHY 100/3.6 [Concomitant]
     Active Substance: INSULIN DEGLUDEC\LIRAGLUTIDE
     Dosage: UNK
  15. ZOPICLONE ARROW [Concomitant]
     Active Substance: ZOPICLONE
     Dosage: UNK
  16. VANCOMYCINE MYLAN                  /00314401/ [Concomitant]
     Active Substance: VANCOMYCIN
     Dosage: UNK
  17. MOVICOL [Concomitant]
     Active Substance: POLYETHYLENE GLYCOL 3350\POTASSIUM CHLORIDE\SODIUM BICARBONATE\SODIUM CHLORIDE
     Dosage: UNK
  18. AMIODARONE ARROW [Suspect]
     Active Substance: AMIODARONE
     Indication: CARDIAC DISORDER
     Dosage: 200 MILLIGRAM, QD
     Route: 048
     Dates: start: 20200619
  19. DOLIPRANE [Concomitant]
     Active Substance: ACETAMINOPHEN
     Dosage: UNK
  20. LANSOPRAZOLE MYLAN [Concomitant]
     Active Substance: LANSOPRAZOLE
     Dosage: UNK

REACTIONS (3)
  - Febrile bone marrow aplasia [Not Recovered/Not Resolved]
  - Anaemia [Recovered/Resolved]
  - Febrile neutropenia [Recovered/Resolved]

NARRATIVE: CASE EVENT DATE: 20200802
